FAERS Safety Report 11963411 (Version 1)
Quarter: 2016Q1

REPORT INFORMATION
  Report Type: Spontaneous
  Country: US (occurrence: None)
  Receive Date: 20160122
  Receipt Date: 20160122
  Transmission Date: 20160526
  Serious: Yes (Other)
  Sender: FDA-Public Use
  Company Number: None

PATIENT
  Age: 56 Year
  Sex: Female
  Weight: 49.9 kg

DRUGS (2)
  1. ALPRAZOLAM 2 MG SANDOZ [Suspect]
     Active Substance: ALPRAZOLAM
     Indication: PANIC ATTACK
     Route: 048
     Dates: start: 20150711, end: 20151129
  2. ALPRAZOLAM 2 MG SANDOZ [Suspect]
     Active Substance: ALPRAZOLAM
     Indication: BIPOLAR DISORDER
     Route: 048
     Dates: start: 20150711, end: 20151129

REACTIONS (6)
  - Product substitution issue [None]
  - Rectal haemorrhage [None]
  - Drug ineffective [None]
  - Faeces discoloured [None]
  - Pain [None]
  - Reaction to drug excipients [None]

NARRATIVE: CASE EVENT DATE: 20151127
